FAERS Safety Report 24041852 (Version 1)
Quarter: 2024Q3

REPORT INFORMATION
  Report Type: Spontaneous
  Country: FR (occurrence: FR)
  Receive Date: 20240702
  Receipt Date: 20240702
  Transmission Date: 20241017
  Serious: Yes (Life-Threatening)
  Sender: PURDUE
  Company Number: FR-PURDUE-USA-2024-0310538

PATIENT
  Age: 70 Year
  Sex: Female
  Weight: 58 kg

DRUGS (1)
  1. OXYCONTIN [Suspect]
     Active Substance: OXYCODONE HYDROCHLORIDE
     Indication: Sickle cell anaemia with crisis
     Dosage: IF PAIN/ SI DOULEUR
     Route: 048
     Dates: start: 20240605, end: 20240606

REACTIONS (1)
  - Coma [Recovered/Resolved]

NARRATIVE: CASE EVENT DATE: 20240605
